FAERS Safety Report 10235851 (Version 1)
Quarter: 2014Q2

REPORT INFORMATION
  Report Type: Spontaneous
  Country: US (occurrence: None)
  Receive Date: 20140612
  Receipt Date: 20140612
  Transmission Date: 20141212
  Serious: Yes (Hospitalization)
  Sender: FDA-Public Use
  Company Number: None

PATIENT
  Age: 37 Year
  Sex: Female
  Weight: 80.29 kg

DRUGS (13)
  1. ALEMTUZUMAB [Suspect]
     Indication: MULTIPLE SCLEROSIS
     Dosage: DAY1TO3 12MG QD IV (041)
     Route: 042
     Dates: start: 20130916, end: 20130918
  2. SOLUMEDROL [Suspect]
     Dosage: DAY1TO3 1G QD IV (041)
     Route: 042
     Dates: start: 20130916, end: 20130918
  3. ACYCLOVIR [Concomitant]
  4. B12 [Concomitant]
  5. CARBAMAZEPINE [Concomitant]
  6. CLONAZEPAM [Concomitant]
  7. DIFLUCAN [Concomitant]
  8. FAMOTIDINE [Concomitant]
  9. HYDROXYZINE HCL [Concomitant]
  10. MECLIZINE [Concomitant]
  11. MELOXICAN [Concomitant]
  12. VITAMIN D [Concomitant]
  13. GUMMI VITIAMINS [Concomitant]

REACTIONS (2)
  - Heparin-induced thrombocytopenia [None]
  - Immune thrombocytopenic purpura [None]
